FAERS Safety Report 6391041-6 (Version None)
Quarter: 2009Q4

REPORT INFORMATION
  Report Type: 
  Country: None (occurrence: None)
  Receive Date: 20091006
  Receipt Date: 20091006
  Transmission Date: 20100525
  Serious: No
  Sender: FDA-Public Use
  Company Number: None

PATIENT
  Age: 61 Year
  Sex: Male
  Weight: 79.3795 kg

DRUGS (2)
  1. OXAPROZIN [Suspect]
     Indication: ANTIINFLAMMATORY THERAPY
     Dates: start: 20090927, end: 20090929
  2. OXCARBAZEPINE [Suspect]
     Indication: AFFECTIVE DISORDER

REACTIONS (3)
  - DRUG DISPENSING ERROR [None]
  - MEDICATION ERROR [None]
  - WITHDRAWAL SYNDROME [None]
